FAERS Safety Report 8619661-6 (Version None)
Quarter: 2012Q3

REPORT INFORMATION
  Report Type: 
  Country: None (occurrence: None)
  Receive Date: 20120824
  Receipt Date: 20120815
  Transmission Date: 20120928
  Serious: Yes (Hospitalization, Other)
  Sender: FDA-Public Use
  Company Number: US-JNJFOC-20120808944

PATIENT
  Sex: Male
  Weight: 95.26 kg

DRUGS (2)
  1. RISPERDAL [Suspect]
     Indication: SCHIZOPHRENIA
     Route: 048
     Dates: start: 19930101, end: 20070101
  2. RISPERIDONE [Suspect]
     Indication: SCHIZOPHRENIA
     Route: 048
     Dates: start: 20070101

REACTIONS (4)
  - CHOLELITHIASIS [None]
  - BLOOD GLUCOSE INCREASED [None]
  - HYPERTENSION [None]
  - RED BLOOD CELL COUNT INCREASED [None]
